FAERS Safety Report 12091525 (Version 1)
Quarter: 2016Q1

REPORT INFORMATION
  Report Type: Spontaneous
  Country: JP (occurrence: JP)
  Receive Date: 20160218
  Receipt Date: 20160218
  Transmission Date: 20160526
  Serious: Yes (Hospitalization)
  Sender: FDA-Public Use
  Company Number: PHHY2016JP018649

PATIENT
  Age: 49 Year
  Sex: Female

DRUGS (1)
  1. METHOTREXATE [Suspect]
     Active Substance: METHOTREXATE
     Indication: NEOPLASM
     Dosage: 20 MG, QD
     Route: 030

REACTIONS (2)
  - Drug eruption [Recovered/Resolved]
  - Febrile neutropenia [Recovered/Resolved]
